FAERS Safety Report 7293505-X (Version None)
Quarter: 2011Q1

REPORT INFORMATION
  Report Type: 
  Country: None (occurrence: None)
  Receive Date: 20110202
  Receipt Date: 20110119
  Transmission Date: 20110831
  Serious: Yes (Other)
  Sender: FDA-Public Use
  Company Number: JPI-P-013553

PATIENT
  Age: 31 Year
  Sex: Male
  Weight: 94.8018 kg

DRUGS (3)
  1. MODAFINIL [Concomitant]
  2. XYREM [Suspect]
     Indication: SOMNOLENCE
     Dosage: ORAL ; 9 GM (4.5 GM,2 IN 1 D),ORAL
     Route: 048
     Dates: start: 20101228
  3. XYREM [Suspect]
     Indication: NARCOLEPSY
     Dosage: ORAL ; 9 GM (4.5 GM,2 IN 1 D),ORAL
     Route: 048
     Dates: start: 20101228

REACTIONS (3)
  - CLAVICLE FRACTURE [None]
  - FALL [None]
  - MUSCULOSKELETAL PAIN [None]
